FAERS Safety Report 9055069 (Version 1)
Quarter: 2013Q1

REPORT INFORMATION
  Report Type: Spontaneous
  Country: DE (occurrence: DE)
  Receive Date: 20130206
  Receipt Date: 20130206
  Transmission Date: 20140127
  Serious: Yes (Other)
  Sender: FDA-Public Use
  Company Number: DE-JNJFOC-20130117419

PATIENT
  Age: 54 None
  Sex: Male
  Weight: 102 kg

DRUGS (5)
  1. XARELTO [Suspect]
     Indication: CEREBROVASCULAR ACCIDENT PROPHYLAXIS
     Route: 048
     Dates: start: 20121101
  2. XARELTO [Suspect]
     Indication: ATRIAL FIBRILLATION
     Route: 048
     Dates: start: 20121101
  3. INEGY [Concomitant]
     Route: 065
     Dates: start: 201207
  4. EXFORGE [Concomitant]
     Route: 065
     Dates: start: 201207
  5. MOXONIDIN [Concomitant]
     Route: 065
     Dates: start: 201207

REACTIONS (4)
  - Gamma-glutamyltransferase increased [Unknown]
  - Haemoglobin decreased [Unknown]
  - Blood uric acid increased [Unknown]
  - Blood creatinine increased [Unknown]
